FAERS Safety Report 10020051 (Version 1)
Quarter: 2014Q1

REPORT INFORMATION
  Report Type: Report from Study
  Country: AR (occurrence: AR)
  Receive Date: 20140318
  Receipt Date: 20140318
  Transmission Date: 20141002
  Serious: Yes (Other)
  Sender: FDA-Public Use
  Company Number: PHHY2014AR032333

PATIENT
  Sex: Female

DRUGS (3)
  1. RASILEZ [Suspect]
     Indication: HYPERTENSION
     Dosage: 150 MG, DAILY
     Route: 048
  2. RASILEZ [Suspect]
     Dosage: 2 DF (150 MG), PRN
     Route: 048
  3. RASILEZ [Suspect]
     Dosage: 150 MG, DAILY
     Route: 048

REACTIONS (3)
  - Pneumonia [Unknown]
  - Chronic obstructive pulmonary disease [Unknown]
  - Blood pressure increased [Recovering/Resolving]
